FAERS Safety Report 20711115 (Version 1)
Quarter: 2022Q2

REPORT INFORMATION
  Report Type: Spontaneous
  Country: US (occurrence: None)
  Receive Date: 20220414
  Receipt Date: 20220414
  Transmission Date: 20220721
  Serious: Yes (Other)
  Sender: FDA-Public Use
  Company Number: US-Fresenius Kabi-FK202204420

PATIENT
  Age: 71 Year
  Sex: Male

DRUGS (1)
  1. CISPLATIN [Suspect]
     Active Substance: CISPLATIN
     Indication: Lung neoplasm malignant

REACTIONS (4)
  - Cardiomyopathy [Unknown]
  - Hypoparathyroidism [Unknown]
  - Hypomagnesaemia [Unknown]
  - Hypocalcaemia [Unknown]
